FAERS Safety Report 5049484-9 (Version None)
Quarter: 2006Q3

REPORT INFORMATION
  Report Type: 
  Country: None (occurrence: None)
  Receive Date: 20060712
  Receipt Date: 20060622
  Transmission Date: 20061208
  Serious: Yes (Life-Threatening, Hospitalization, Other)
  Sender: FDA-Public Use
  Company Number: 2006AP02888

PATIENT
  Age: 67 Year
  Sex: Female
  Weight: 50 kg

DRUGS (1)
  1. MEROPENEM [Suspect]
     Indication: CHOLECYSTITIS
     Route: 041
     Dates: start: 20060419, end: 20060420

REACTIONS (2)
  - SHOCK [None]
  - THROMBOCYTOPENIA [None]
